FAERS Safety Report 18739962 (Version 2)
Quarter: 2021Q1

REPORT INFORMATION
  Report Type: Spontaneous
  Country: US (occurrence: US)
  Receive Date: 20210114
  Receipt Date: 20210310
  Transmission Date: 20210419
  Serious: No
  Sender: FDA-Public Use
  Company Number: US-ASTRAZENECA-2020SF76111

PATIENT
  Age: 688 Month
  Sex: Female
  Weight: 82.7 kg

DRUGS (3)
  1. SYMBICORT [Suspect]
     Active Substance: BUDESONIDE\FORMOTEROL FUMARATE DIHYDRATE
     Indication: CHRONIC OBSTRUCTIVE PULMONARY DISEASE
     Dosage: SYMBICORT 160/4.5 MCG 120 INHALATIONS TWO TIMES A DAY SINCE 2006 OR 2007
     Route: 055
     Dates: start: 20120217
  2. ALBUTEROL. [Concomitant]
     Active Substance: ALBUTEROL
  3. SYMBICORT [Suspect]
     Active Substance: BUDESONIDE\FORMOTEROL FUMARATE DIHYDRATE
     Indication: ASTHMA
     Dosage: SYMBICORT 160/4.5 MCG 120 INHALATIONS TWO TIMES A DAY SINCE 2006 OR 2007
     Route: 055
     Dates: start: 20120217

REACTIONS (9)
  - Dyspnoea [Recovered/Resolved]
  - Emotional disorder [Not Recovered/Not Resolved]
  - Product administration error [Not Recovered/Not Resolved]
  - Lung disorder [Not Recovered/Not Resolved]
  - Vitamin D deficiency [Not Recovered/Not Resolved]
  - Intentional device misuse [Not Recovered/Not Resolved]
  - Drug delivery system malfunction [Unknown]
  - Weight increased [Not Recovered/Not Resolved]
  - Wrong technique in device usage process [Recovered/Resolved]

NARRATIVE: CASE EVENT DATE: 202011
